FAERS Safety Report 6734582-1 (Version None)
Quarter: 2010Q2

REPORT INFORMATION
  Report Type: 
  Country: None (occurrence: None)
  Receive Date: 20100520
  Receipt Date: 20100506
  Transmission Date: 20101027
  Serious: Yes (Death, Hospitalization)
  Sender: FDA-Public Use
  Company Number: FR-AMGEN-UK302226

PATIENT
  Sex: Female

DRUGS (5)
  1. NEULASTA [Suspect]
     Indication: NEUTROPENIA
     Route: 042
     Dates: start: 20080110
  2. DIURETICS [Concomitant]
  3. RED BLOOD CELLS [Concomitant]
  4. EPOETIN ALFA [Concomitant]
  5. GRANOCYTE [Concomitant]
     Dates: start: 19910201, end: 20080107

REACTIONS (16)
  - ACUTE RESPIRATORY FAILURE [None]
  - BRONCHITIS [None]
  - CARDIO-RESPIRATORY ARREST [None]
  - CONVULSION [None]
  - ELECTROCARDIOGRAM T WAVE INVERSION [None]
  - FLUID OVERLOAD [None]
  - GENERAL PHYSICAL HEALTH DETERIORATION [None]
  - GRANULOCYTOSIS [None]
  - HYPOGLYCAEMIA [None]
  - LEUKOCYTOSIS [None]
  - METABOLIC ACIDOSIS [None]
  - METABOLIC DISORDER [None]
  - MULTI-ORGAN FAILURE [None]
  - PNEUMONIA [None]
  - PULMONARY ARTERIAL HYPERTENSION [None]
  - PULMONARY VASCULAR DISORDER [None]
